FAERS Safety Report 9233836 (Version 1)
Quarter: 2013Q2

REPORT INFORMATION
  Report Type: Report from Study
  Country: US (occurrence: US)
  Receive Date: 20130416
  Receipt Date: 20130416
  Transmission Date: 20140414
  Serious: Yes (Death)
  Sender: FDA-Public Use
  Company Number: US-ACTELION-A-NJ2013-82037

PATIENT
  Age: 84 Year
  Sex: Female

DRUGS (5)
  1. VENTAVIS [Suspect]
     Indication: PULMONARY ARTERIAL HYPERTENSION
     Dosage: 5 MCG, 6 TIMES A DAY
     Route: 055
     Dates: start: 200912
  2. VENTAVIS [Suspect]
     Dosage: UNK
     Route: 055
     Dates: start: 20081112, end: 200911
  3. SILDENAFIL [Concomitant]
  4. COUMADIN [Concomitant]
  5. CLOPIDOGREL [Concomitant]

REACTIONS (1)
  - Death [Fatal]
